FAERS Safety Report 4754284-0 (Version None)
Quarter: 2005Q3

REPORT INFORMATION
  Report Type: 
  Country: None (occurrence: None)
  Receive Date: 20050829
  Receipt Date: 20041011
  Transmission Date: 20060218
  Serious: Yes (Hospitalization)
  Sender: FDA-Public Use
  Company Number: 2004UW21231

PATIENT
  Age: 42 Year
  Sex: Female
  Weight: 93.6 kg

DRUGS (2)
  1. SEROQUEL [Suspect]
     Indication: BIPOLAR I DISORDER
     Dosage: 1-4 TABS
     Route: 048
     Dates: start: 20040927, end: 20041006
  2. DARVOCET [Suspect]
     Indication: CHEST WALL PAIN
     Dosage: 1-2 TABS PRN
     Route: 048
     Dates: start: 20041004, end: 20041006

REACTIONS (8)
  - ALANINE AMINOTRANSFERASE INCREASED [None]
  - ASPARTATE AMINOTRANSFERASE INCREASED [None]
  - ATELECTASIS [None]
  - BLOOD URINE [None]
  - DIVERTICULUM INTESTINAL [None]
  - HYPOTENSION [None]
  - LUNG INFILTRATION [None]
  - SYNCOPE [None]
